FAERS Safety Report 13357851 (Version 6)
Quarter: 2018Q3

REPORT INFORMATION
  Report Type: Spontaneous
  Country: US (occurrence: US)
  Receive Date: 20170322
  Receipt Date: 20180704
  Transmission Date: 20181010
  Serious: No
  Sender: FDA-Public Use
  Company Number: US-PFIZER INC-2017117902

PATIENT
  Age: 67 Year
  Sex: Female
  Weight: 59 kg

DRUGS (16)
  1. IBRANCE [Suspect]
     Active Substance: PALBOCICLIB
     Dosage: 20 MG, 1X/DAY (PM)
     Dates: start: 20170120
  2. VITAMIN D3 [Concomitant]
     Active Substance: CHOLECALCIFEROL
     Dosage: UNK, DAILY (PM)
     Dates: start: 20171117
  3. IBRANCE [Suspect]
     Active Substance: PALBOCICLIB
     Indication: BREAST CANCER METASTATIC
     Dosage: 125 MG, CYCLIC (DAILY FOR 21 DAYS AND THEN OFF FOR 7 DAYS, REPEAT)
     Route: 048
     Dates: start: 201701
  4. IBRANCE [Suspect]
     Active Substance: PALBOCICLIB
     Dosage: 125 MG, CYCLIC (DAILY FOR 21 DAYS AND THEN OFF FOR 7 DAYS, REPEAT)/(21 DAYS THEN 7DAYS OFF, REPEAT)
     Dates: start: 20170120
  5. IBRANCE [Suspect]
     Active Substance: PALBOCICLIB
     Dosage: 125 MG, CYCLIC  (DAILY FOR 21 DAYS AND THEN OFF FOR 7 DAYS, REPEAT)
     Route: 048
     Dates: start: 201701
  6. ALPHA LIPOIC ACID [Concomitant]
     Active Substance: .ALPHA.-LIPOIC ACID
     Dosage: UNK, AS NEEDED (AM)
     Dates: end: 201708
  7. GLUTAMINE [Concomitant]
     Active Substance: GLUTAMINE
     Dosage: 5 G, 6XDAY (AM)
     Route: 048
  8. FEMARA [Concomitant]
     Active Substance: LETROZOLE
     Indication: BREAST CANCER METASTATIC
     Dosage: 2.5 MG, DAILY (PM)
     Route: 048
     Dates: start: 201701
  9. ALPHA LIPOIC ACID [Concomitant]
     Active Substance: .ALPHA.-LIPOIC ACID
     Dosage: UNK
  10. ALPHA LIPOIC ACID [Concomitant]
     Active Substance: .ALPHA.-LIPOIC ACID
     Dosage: 600 MG, DAILY
     Route: 048
  11. VITAMIN B6 [Concomitant]
     Active Substance: PYRIDOXINE HYDROCHLORIDE
     Dosage: 100 MG, DAILY (AM)
     Route: 048
  12. XGEVA [Concomitant]
     Active Substance: DENOSUMAB
     Dosage: UNK
  13. FISH OIL [Concomitant]
     Active Substance: FISH OIL
     Dosage: 1200 MG, UNK
  14. VITAMIN B12 [Concomitant]
     Active Substance: CYANOCOBALAMIN
     Dosage: 1000 UG, DAILY (AM)
     Route: 048
  15. VITAMIN D2 [Concomitant]
     Active Substance: ERGOCALCIFEROL
     Dosage: 1 DF, WEEKLY (50,000)
     Dates: end: 20171110
  16. CALCIUM [Concomitant]
     Active Substance: CALCIUM
     Dosage: 1200 MG, UNK

REACTIONS (6)
  - Blood pressure increased [Unknown]
  - Nausea [Recovered/Resolved]
  - Drug dose omission [Unknown]
  - Nodule [Recovered/Resolved]
  - Neuralgia [Not Recovered/Not Resolved]
  - Bone swelling [Not Recovered/Not Resolved]

NARRATIVE: CASE EVENT DATE: 2017
